FAERS Safety Report 14859293 (Version 2)
Quarter: 2018Q2

REPORT INFORMATION
  Report Type: Spontaneous
  Country: ES (occurrence: ES)
  Receive Date: 20180508
  Receipt Date: 20180509
  Transmission Date: 20180711
  Serious: Yes (Other)
  Sender: FDA-Public Use
  Company Number: ES-AUROBINDO-AUR-APL-2018-023282

PATIENT
  Age: 44 Year
  Sex: Male

DRUGS (3)
  1. INTELENCE [Concomitant]
     Active Substance: ETRAVIRINE
     Dosage: UNK ()
  2. ABACAVIR+LAMIVUDINE FILM COATED TABLET [Suspect]
     Active Substance: ABACAVIR\LAMIVUDINE
     Indication: HIV INFECTION
     Dosage: UNK ()
     Route: 065
  3. INTELENCE [Concomitant]
     Active Substance: ETRAVIRINE
     Indication: PRODUCT USED FOR UNKNOWN INDICATION
     Dosage: UNK ()

REACTIONS (1)
  - Arthrotoxicity [Unknown]
